FAERS Safety Report 21716288 (Version 2)
Quarter: 2022Q4

REPORT INFORMATION
  Report Type: Report from Study
  Country: BR (occurrence: BR)
  Receive Date: 20221212
  Receipt Date: 20221221
  Transmission Date: 20230112
  Serious: Yes (Hospitalization)
  Sender: FDA-Public Use
  Company Number: BR-ELI_LILLY_AND_COMPANY-BR202210004203

PATIENT
  Age: 47 Year
  Sex: Female

DRUGS (2)
  1. ABEMACICLIB [Suspect]
     Active Substance: ABEMACICLIB
     Indication: Breast cancer metastatic
     Dosage: 150 MG, BID (09H AM AND 09H PM)
     Route: 048
     Dates: start: 20220929, end: 20221021
  2. SODIUM CHLORIDE [Concomitant]
     Active Substance: SODIUM CHLORIDE
     Indication: Product used for unknown indication
     Dosage: UNK UNK, OTHER
     Route: 065

REACTIONS (15)
  - Blood disorder [Unknown]
  - Blood thromboplastin increased [Unknown]
  - Full blood count decreased [Unknown]
  - Platelet count decreased [Unknown]
  - Anaemia [Unknown]
  - Skin discolouration [Unknown]
  - Glossodynia [Unknown]
  - Gingival bleeding [Unknown]
  - Mood altered [Recovering/Resolving]
  - Tooth disorder [Unknown]
  - Stomatitis [Unknown]
  - Sluggishness [Unknown]
  - Decreased appetite [Unknown]
  - Diarrhoea [Unknown]
  - Vomiting [Unknown]

NARRATIVE: CASE EVENT DATE: 20221021
